FAERS Safety Report 23477541 (Version 1)
Quarter: 2024Q1

REPORT INFORMATION
  Report Type: Report from Study
  Country: US (occurrence: US)
  Receive Date: 20240204
  Receipt Date: 20240204
  Transmission Date: 20240410
  Serious: No
  Sender: FDA-Public Use
  Company Number: US-EXELIXIS-CABO-23067164

PATIENT
  Sex: Female

DRUGS (1)
  1. CABOMETYX [Suspect]
     Active Substance: CABOZANTINIB S-MALATE
     Indication: Renal cancer
     Dosage: 20 MG, QD
     Route: 048

REACTIONS (8)
  - Secretion discharge [Recovering/Resolving]
  - Adverse event [Unknown]
  - Taste disorder [Unknown]
  - Fatigue [Unknown]
  - Headache [Unknown]
  - Dry skin [Unknown]
  - Nausea [Unknown]
  - Decreased appetite [Unknown]
